FAERS Safety Report 4577944-3 (Version None)
Quarter: 2005Q1

REPORT INFORMATION
  Report Type: 
  Country: None (occurrence: None)
  Receive Date: 20050209
  Receipt Date: 20050202
  Transmission Date: 20050727
  Serious: Yes (Life-Threatening)
  Sender: FDA-Public Use
  Company Number: 2001000315-FJ

PATIENT
  Age: 35 Year
  Sex: Male
  Weight: 57 kg

DRUGS (13)
  1. PROGRAF [Suspect]
     Indication: RENAL AND PANCREAS TRANSPLANT
     Dosage: 0.6 MG INTRAVENOUS
     Route: 042
     Dates: start: 20010116, end: 20010122
  2. DOPAMINE HCL [Suspect]
     Dosage: 72 UG/KG INTRAVENOUS
     Route: 042
     Dates: start: 20010109, end: 20010129
  3. DILTIAZEM HYDROCHLORIDE [Suspect]
     Dosage: 40.8 MG INTRAVENOUS
     Route: 042
     Dates: start: 20010109, end: 20010121
  4. NITROGLYCERIN [Suspect]
     Dosage: 12 UG/KG INTRAVENOUS
     Route: 042
     Dates: start: 20010109, end: 20010122
  5. MYCOPHENOLIC ACID [Concomitant]
  6. PREDNISOLONE [Concomitant]
  7. FLUCONAZOLE [Concomitant]
  8. NAFAMOSTAT MESILATE [Concomitant]
  9. PANIPENEM/BETAMIPRON [Concomitant]
  10. HEPARIN [Concomitant]
  11. METHYLPREDNISOLONE [Concomitant]
  12. ATGAM [Concomitant]
  13. ANTITHYMOCYTE IMMUNOGLOBULIN [Concomitant]

REACTIONS (6)
  - CARDIOTOXICITY [None]
  - DRUG LEVEL INCREASED [None]
  - GRAFT THROMBOSIS [None]
  - HYPOTENSION [None]
  - LOSS OF CONSCIOUSNESS [None]
  - VENTRICULAR TACHYCARDIA [None]
